FAERS Safety Report 4960463-X (Version None)
Quarter: 2006Q2

REPORT INFORMATION
  Report Type: 
  Country: None (occurrence: None)
  Receive Date: 20060403
  Receipt Date: 20060323
  Transmission Date: 20061013
  Serious: Yes (Other)
  Sender: FDA-Public Use
  Company Number: JP-JPN-A200601039

PATIENT
  Age: 56 Year
  Sex: Male

DRUGS (8)
  1. FLUTIDE [Suspect]
     Indication: ASTHMA
     Dosage: 200MCG TWICE PER DAY
     Route: 055
  2. AMARYL [Concomitant]
     Route: 048
  3. MEDENT [Concomitant]
     Route: 048
  4. BASEN [Concomitant]
     Route: 048
  5. KIPRES [Concomitant]
     Route: 048
  6. MUCODYNE [Concomitant]
     Route: 048
  7. SEREVENT [Concomitant]
     Route: 055
  8. URSO [Concomitant]
     Route: 048

REACTIONS (2)
  - CONDITION AGGRAVATED [None]
  - DIABETES MELLITUS [None]
